FAERS Safety Report 6286710-2 (Version None)
Quarter: 2009Q3

REPORT INFORMATION
  Report Type: 
  Country: None (occurrence: None)
  Receive Date: 20090727
  Receipt Date: 20090727
  Transmission Date: 20100115
  Serious: Yes (Other)
  Sender: FDA-Public Use
  Company Number: None

PATIENT
  Age: 39 Year
  Sex: Male
  Weight: 88.4514 kg

DRUGS (1)
  1. ZICAM COLD RELIEF ? DO NOT HAVE ORIGINAL BOX [Suspect]

REACTIONS (2)
  - AGEUSIA [None]
  - ANOSMIA [None]
